FAERS Safety Report 9218183 (Version 1)
Quarter: 2013Q2

REPORT INFORMATION
  Report Type: Spontaneous
  Country: IT (occurrence: IT)
  Receive Date: 20130408
  Receipt Date: 20130408
  Transmission Date: 20140414
  Serious: Yes (Hospitalization)
  Sender: FDA-Public Use
  Company Number: PHHY2013IT033155

PATIENT
  Sex: Female

DRUGS (9)
  1. METFORMIN [Suspect]
     Indication: TYPE 2 DIABETES MELLITUS
     Dosage: 2000 MG, DAILY
     Route: 048
     Dates: start: 20110101, end: 20130324
  2. SOLOSA [Suspect]
     Indication: TYPE 2 DIABETES MELLITUS
     Dosage: 1 DF, DAILY
     Route: 048
     Dates: start: 20110101, end: 20130324
  3. CARDIOASPIRIN [Concomitant]
  4. ZYLORIC [Concomitant]
  5. TRIATEC [Concomitant]
  6. CORDARONE [Concomitant]
  7. LASIX [Concomitant]
  8. MONOCINQUE [Concomitant]
  9. OMEPRAZOLE [Concomitant]

REACTIONS (2)
  - Confusional state [Recovering/Resolving]
  - Hypoglycaemia [Recovering/Resolving]
